FAERS Safety Report 23354889 (Version 1)
Quarter: 2024Q1

REPORT INFORMATION
  Report Type: Spontaneous
  Country: IN (occurrence: IN)
  Receive Date: 20240101
  Receipt Date: 20240101
  Transmission Date: 20240410
  Serious: Yes (Hospitalization)
  Sender: FDA-Public Use
  Company Number: IN-PRINSTON PHARMACEUTICAL INC.-2023PRN00642

PATIENT
  Age: 69 Year
  Sex: Male

DRUGS (14)
  1. LEVETIRACETAM [Suspect]
     Active Substance: LEVETIRACETAM
  2. TIGECYCLINE [Suspect]
     Active Substance: TIGECYCLINE
     Indication: C-reactive protein increased
     Dosage: 100 MG, ONCE; LOADING DOSE
     Route: 042
     Dates: start: 20220427
  3. TIGECYCLINE [Suspect]
     Active Substance: TIGECYCLINE
     Dosage: 50 MG, 2X/DAY
     Route: 042
  4. MEROPENEM [Concomitant]
     Active Substance: MEROPENEM
     Indication: Pyrexia
     Dosage: UNK
     Dates: start: 20220418, end: 20220426
  5. MEROPENEM [Concomitant]
     Active Substance: MEROPENEM
     Indication: C-reactive protein increased
  6. TEICOPLANIN [Concomitant]
     Active Substance: TEICOPLANIN
     Indication: Pyrexia
     Dosage: UNK
     Dates: start: 20220418, end: 20220423
  7. TEICOPLANIN [Concomitant]
     Active Substance: TEICOPLANIN
     Indication: C-reactive protein increased
  8. TYPE 2 DIABETES ORAL MEDICATION [Concomitant]
     Indication: Type 2 diabetes mellitus
  9. METOPROLOL [Concomitant]
     Active Substance: METOPROLOL
  10. METFORMIN [Concomitant]
     Active Substance: METFORMIN HYDROCHLORIDE
  11. IVABRADINE [Concomitant]
     Active Substance: IVABRADINE
  12. PANTOPRAZOLE [Concomitant]
     Active Substance: PANTOPRAZOLE
  13. ALBUTEROL SULFATE\IPRATROPIUM BROMIDE [Concomitant]
     Active Substance: ALBUTEROL SULFATE\IPRATROPIUM BROMIDE
  14. LACTULOSE [Concomitant]
     Active Substance: LACTULOSE

REACTIONS (1)
  - Rhabdomyolysis [Recovered/Resolved]

NARRATIVE: CASE EVENT DATE: 20220101
